FAERS Safety Report 9776838 (Version 4)
Quarter: 2014Q2

REPORT INFORMATION
  Report Type: Spontaneous
  Country: DE (occurrence: DE)
  Receive Date: 20131221
  Receipt Date: 20140630
  Transmission Date: 20141212
  Serious: Yes (Death)
  Sender: FDA-Public Use
  Company Number: PHHY2013DE148233

PATIENT
  Sex: Male

DRUGS (1)
  1. SIGNIFOR [Suspect]
     Indication: PITUITARY-DEPENDENT CUSHING^S SYNDROME
     Dosage: 600 UG (0.6 MG), BID
     Route: 058
     Dates: start: 201311, end: 201311

REACTIONS (1)
  - Oesophageal perforation [Fatal]
